FAERS Safety Report 8207642-6 (Version None)
Quarter: 2012Q1

REPORT INFORMATION
  Report Type: 
  Country: None (occurrence: None)
  Receive Date: 20120314
  Receipt Date: 20120314
  Transmission Date: 20120608
  Serious: Yes (Life-Threatening, Hospitalization)
  Sender: FDA-Public Use
  Company Number: None

PATIENT
  Age: 57 Year
  Sex: Male
  Weight: 113.39 kg

DRUGS (1)
  1. AMLODIPINE [Suspect]

REACTIONS (2)
  - PULSE ABSENT [None]
  - OVERDOSE [None]
